FAERS Safety Report 18078142 (Version 1)
Quarter: 2020Q3

REPORT INFORMATION
  Report Type: Spontaneous
  Country: US (occurrence: US)
  Receive Date: 20200727
  Receipt Date: 20200727
  Transmission Date: 20201103
  Serious: No
  Sender: FDA-Public Use
  Company Number: US-SEATTLE GENETICS-2020SGN03134

PATIENT
  Sex: Female

DRUGS (1)
  1. TUKYSA [Suspect]
     Active Substance: TUCATINIB
     Indication: BREAST CANCER FEMALE

REACTIONS (6)
  - Palmar-plantar erythrodysaesthesia syndrome [Unknown]
  - Blister [Unknown]
  - Decreased appetite [Unknown]
  - Abdominal pain upper [Unknown]
  - Gait disturbance [Unknown]
  - Diarrhoea [Unknown]
